FAERS Safety Report 8534040-8 (Version None)
Quarter: 2012Q2

REPORT INFORMATION
  Report Type: 
  Country: None (occurrence: None)
  Receive Date: 20120412
  Receipt Date: 20081118
  Transmission Date: 20120825
  Serious: Yes (Other)
  Sender: FDA-Public Use
  Company Number: PHEH2008US10336

PATIENT
  Age: 50 Year
  Sex: Male

DRUGS (2)
  1. . [Concomitant]
  2. CLOZARIL [Suspect]
     Dosage: 400 MG, QD

REACTIONS (1)
  - HEART RATE INCREASED [None]
